FAERS Safety Report 15497553 (Version 1)
Quarter: 2018Q4

REPORT INFORMATION
  Report Type: Spontaneous
  Country: US (occurrence: US)
  Receive Date: 20181015
  Receipt Date: 20181015
  Transmission Date: 20190205
  Serious: No
  Sender: FDA-Public Use
  Company Number: US-BAUSCH-BL-2018-011430

PATIENT
  Age: 68 Year
  Sex: Female
  Weight: 54.48 kg

DRUGS (1)
  1. ALREX [Suspect]
     Active Substance: LOTEPREDNOL ETABONATE
     Indication: POSTOPERATIVE CARE
     Route: 031
     Dates: start: 201804, end: 201804

REACTIONS (2)
  - Eye pain [Recovering/Resolving]
  - Drug effect decreased [Recovered/Resolved]

NARRATIVE: CASE EVENT DATE: 201804
